FAERS Safety Report 22307815 (Version 1)
Quarter: 2023Q2

REPORT INFORMATION
  Report Type: Spontaneous
  Country: US (occurrence: None)
  Receive Date: 20230511
  Receipt Date: 20230511
  Transmission Date: 20230722
  Serious: No
  Sender: FDA-Public Use
  Company Number: US-ROCHE-3124294

PATIENT
  Age: 44 Year
  Sex: Female
  Weight: 67.192 kg

DRUGS (1)
  1. OCREVUS [Suspect]
     Active Substance: OCRELIZUMAB
     Indication: Relapsing-remitting multiple sclerosis
     Dosage: NO
     Route: 065
     Dates: start: 20211101, end: 20220520

REACTIONS (1)
  - Genital dysaesthesia [Unknown]

NARRATIVE: CASE EVENT DATE: 20220520
